FAERS Safety Report 5759646-0 (Version None)
Quarter: 2008Q2

REPORT INFORMATION
  Report Type: 
  Country: None (occurrence: None)
  Receive Date: 20080605
  Receipt Date: 20080530
  Transmission Date: 20081010
  Serious: Yes (Other)
  Sender: FDA-Public Use
  Company Number: US-KINGPHARMUSA00001-K200800607

PATIENT

DRUGS (2)
  1. ALTACE [Suspect]
     Indication: CARDIAC DISORDER
     Route: 048
  2. ACTOS [Suspect]
     Indication: TYPE 2 DIABETES MELLITUS
     Dosage: 30 MG, QD
     Route: 048

REACTIONS (2)
  - CARDIAC VALVE DISEASE [None]
  - POLLAKIURIA [None]
